FAERS Safety Report 14854345 (Version 1)
Quarter: 2018Q2

REPORT INFORMATION
  Report Type: Spontaneous
  Country: CA (occurrence: CA)
  Receive Date: 20180507
  Receipt Date: 20180507
  Transmission Date: 20180711
  Serious: Yes (Disabling)
  Sender: FDA-Public Use
  Company Number: CA-TEVA-2018-CA-888430

PATIENT
  Age: 22 Year
  Sex: Female
  Weight: 48.58 kg

DRUGS (1)
  1. RABEPRAZOLE EC [Suspect]
     Active Substance: RABEPRAZOLE
     Indication: ULCER
     Route: 048

REACTIONS (5)
  - Painful respiration [Recovered/Resolved]
  - Chest pain [Recovered/Resolved]
  - Back pain [Recovered/Resolved]
  - Musculoskeletal stiffness [Recovered/Resolved]
  - Neck pain [Recovered/Resolved]
